FAERS Safety Report 9105579 (Version 2)
Quarter: 2013Q2

REPORT INFORMATION
  Report Type: Spontaneous
  Country: ES (occurrence: ES)
  Receive Date: 20130220
  Receipt Date: 20130415
  Transmission Date: 20140414
  Serious: Yes (Death, Other)
  Sender: FDA-Public Use
  Company Number: ES-OTSUKA-US-2013-10258

PATIENT
  Sex: Male

DRUGS (4)
  1. BUSULFEX [Suspect]
     Indication: PLASMA CELL MYELOMA
     Dosage: 3.2 MG/KG, QD
     Route: 042
  2. MELPHALAN [Suspect]
     Indication: PLASMA CELL MYELOMA
     Dosage: 140 MG/M2, UNK
  3. PHENYTOIN [Concomitant]
  4. ANTIBIOTICS [Concomitant]

REACTIONS (3)
  - Pneumonia [Fatal]
  - Septic shock [Fatal]
  - Mucosal inflammation [Fatal]
